FAERS Safety Report 10311217 (Version 2)
Quarter: 2014Q3

REPORT INFORMATION
  Report Type: Spontaneous
  Country: CZ (occurrence: CZ)
  Receive Date: 20140717
  Receipt Date: 20140814
  Transmission Date: 20150326
  Serious: Yes (Other)
  Sender: FDA-Public Use
  Company Number: CZ-VERTEX PHARMACEUTICALS (CANADA)-2014-003151

PATIENT

DRUGS (3)
  1. INCIVO [Suspect]
     Active Substance: TELAPREVIR
     Indication: CHRONIC HEPATITIS C
     Route: 065
  2. RIBAVIRIN. [Suspect]
     Active Substance: RIBAVIRIN
     Indication: CHRONIC HEPATITIS C
     Dosage: UNK
     Route: 065
  3. PEGINTERFERON ALFA-2A [Suspect]
     Active Substance: PEGINTERFERON ALFA-2A
     Indication: CHRONIC HEPATITIS C
     Dosage: UNK
     Route: 065

REACTIONS (15)
  - Thrombocytopenia [Unknown]
  - Cough [Unknown]
  - Influenza like illness [Unknown]
  - Pruritus [Unknown]
  - Rash [Unknown]
  - Stomatitis [Unknown]
  - Fatigue [Unknown]
  - Anaemia [Unknown]
  - Headache [Unknown]
  - Anorectal disorder [Unknown]
  - Dysgeusia [Unknown]
  - Pneumonia [Unknown]
  - Insomnia [Unknown]
  - Depression [Unknown]
  - Weight decreased [Unknown]
